FAERS Safety Report 9105655 (Version 2)
Quarter: 2013Q4

REPORT INFORMATION
  Report Type: Spontaneous
  Country: US (occurrence: US)
  Receive Date: 20130221
  Receipt Date: 20131108
  Transmission Date: 20140711
  Serious: Yes (Death)
  Sender: FDA-Public Use
  Company Number: US-GLAXOSMITHKLINE-A1011304A

PATIENT
  Age: 63 Year
  Sex: Female

DRUGS (3)
  1. FLOLAN [Suspect]
     Indication: PULMONARY ARTERIAL HYPERTENSION
     Dosage: 45NGKM CONTINUOUS
     Route: 042
     Dates: start: 20090522
  2. AMOXICILLIN [Concomitant]
  3. COUMADIN [Concomitant]

REACTIONS (6)
  - Death [Fatal]
  - Pneumonia [Unknown]
  - Cough [Unknown]
  - Oropharyngeal pain [Unknown]
  - Ear pain [Unknown]
  - Malaise [Unknown]
